FAERS Safety Report 19107054 (Version 1)
Quarter: 2021Q2

REPORT INFORMATION
  Report Type: Spontaneous
  Country: IT (occurrence: IT)
  Receive Date: 20210408
  Receipt Date: 20210408
  Transmission Date: 20210717
  Serious: Yes (Congenital Anomaly, Other)
  Sender: FDA-Public Use
  Company Number: IT-EMD SERONO-9221322

PATIENT
  Age: 31 Year
  Sex: Female

DRUGS (3)
  1. REBIF [Suspect]
     Active Substance: INTERFERON BETA-1A
     Dates: start: 201411, end: 202102
  2. LEVOTHYROXINE. [Concomitant]
     Active Substance: LEVOTHYROXINE
     Indication: AUTOIMMUNE THYROIDITIS
     Dosage: (75 MCG 1 TABLET MONDAY TO SATURDAY, 37.5 MCG ONLY ON SUNDAY)
  3. REBIF [Suspect]
     Active Substance: INTERFERON BETA-1A
     Indication: RELAPSING-REMITTING MULTIPLE SCLEROSIS
     Dates: start: 201409, end: 2014

REACTIONS (8)
  - Injection site calcification [Unknown]
  - Neutropenia [Unknown]
  - Normocytic anaemia [Unknown]
  - Leukopenia [Unknown]
  - Injection site indentation [Unknown]
  - Injection site nodule [Unknown]
  - Headache [Recovering/Resolving]
  - Anaemia [Unknown]

NARRATIVE: CASE EVENT DATE: 20160108
